FAERS Safety Report 5150189-4 (Version None)
Quarter: 2006Q4

REPORT INFORMATION
  Report Type: 
  Country: None (occurrence: None)
  Receive Date: 20061108
  Receipt Date: 20061025
  Transmission Date: 20070319
  Serious: Yes (Other)
  Sender: FDA-Public Use
  Company Number: 230285M06USA

PATIENT
  Age: 55 Year
  Sex: Female
  Weight: 58.9676 kg

DRUGS (1)
  1. REBIF [Suspect]
     Indication: MULTIPLE SCLEROSIS
     Dosage: 44 MCG, 3 IN 1 WEEKS
     Dates: start: 20031215, end: 20060822

REACTIONS (1)
  - BREAST CANCER IN SITU [None]
